FAERS Safety Report 5839364-0 (Version None)
Quarter: 2008Q3

REPORT INFORMATION
  Report Type: 
  Country: None (occurrence: None)
  Receive Date: 20080806
  Receipt Date: 20080730
  Transmission Date: 20090109
  Serious: Yes (Other)
  Sender: FDA-Public Use
  Company Number: URSO-2008-073-FUP #1

PATIENT
  Age: 75 Year
  Sex: Male

DRUGS (1)
  1. URSO 250 [Suspect]
     Indication: LIVER DISORDER
     Dosage: PO
     Route: 048

REACTIONS (1)
  - INTERSTITIAL LUNG DISEASE [None]
